FAERS Safety Report 14643520 (Version 1)
Quarter: 2018Q1

REPORT INFORMATION
  Report Type: Spontaneous
  Country: GB (occurrence: GB)
  Receive Date: 20180315
  Receipt Date: 20180315
  Transmission Date: 20180509
  Serious: Yes (Other)
  Sender: FDA-Public Use
  Company Number: GB-PFIZER INC-2018101868

PATIENT
  Age: 70 Year
  Sex: Female
  Weight: 73.47 kg

DRUGS (8)
  1. SALBUTAMOL SULFATE [Concomitant]
     Active Substance: ALBUTEROL SULFATE
     Dosage: UNK
  2. PRASUGREL. [Concomitant]
     Active Substance: PRASUGREL
     Dosage: UNK
  3. ATORVASTATIN CALCIUM. [Suspect]
     Active Substance: ATORVASTATIN CALCIUM
     Dosage: 20 MG, UNK
     Route: 048
     Dates: start: 20170505, end: 20171103
  4. GLYCERYL TRINITRATE [Concomitant]
     Active Substance: NITROGLYCERIN
     Dosage: UNK
  5. ATORVASTATIN CALCIUM. [Suspect]
     Active Substance: ATORVASTATIN CALCIUM
     Dosage: 10 MG, UNK
  6. PERINDOPRIL TERT-BUTYLAMINE [Concomitant]
     Active Substance: PERINDOPRIL ERBUMINE
     Dosage: UNK
  7. BISOPROLOL FUMARATE. [Concomitant]
     Active Substance: BISOPROLOL FUMARATE
     Dosage: UNK
  8. CLENIL MODULITE [Concomitant]
     Active Substance: BECLOMETHASONE DIPROPIONATE
     Dosage: UNK

REACTIONS (2)
  - Feeling hot [Unknown]
  - Myalgia [Recovering/Resolving]

NARRATIVE: CASE EVENT DATE: 20170608
